FAERS Safety Report 8780159 (Version 1)
Quarter: 2012Q4

REPORT INFORMATION
  Report Type: Spontaneous
  Country: DK (occurrence: None)
  Receive Date: 20120828
  Receipt Date: 20120828
  Transmission Date: 20130627
  Serious: No
  Sender: FDA-Public Use
  Company Number: 2012MA010478

PATIENT
  Age: 32 Year
  Sex: Female

DRUGS (7)
  1. FLUOXETINE [Suspect]
     Route: 048
     Dates: start: 20100621, end: 20111004
  2. CITALOPRAM HYDROBROMIDE [Suspect]
     Route: 048
     Dates: start: 20111004
  3. PROPRANOLOL HYDROCHLORIDE [Suspect]
     Route: 048
     Dates: start: 20090505
  4. SEROQUEL XL [Suspect]
     Route: 048
     Dates: start: 20110323, end: 20110910
  5. DIHYDROCODEINE [Suspect]
     Route: 048
     Dates: start: 20100315
  6. OMEPRAZOLE [Suspect]
     Route: 048
     Dates: start: 20080919
  7. CHLORPROMAZINE HYDROCHLORIDE [Suspect]
     Route: 048
     Dates: start: 20110922

REACTIONS (3)
  - Maternal exposure during pregnancy [None]
  - Premature delivery [None]
  - Pre-eclampsia [None]
